FAERS Safety Report 25449432 (Version 1)
Quarter: 2025Q2

REPORT INFORMATION
  Report Type: Spontaneous
  Country: CA (occurrence: CA)
  Receive Date: 20250618
  Receipt Date: 20250618
  Transmission Date: 20250717
  Serious: Yes (Life-Threatening, Hospitalization, Other)
  Sender: PHARMACOSMOS A/S
  Company Number: None

PATIENT
  Age: 83 Year
  Sex: Male
  Weight: 84 kg

DRUGS (19)
  1. MONOFERRIC [Suspect]
     Active Substance: FERRIC DERISOMALTOSE
     Indication: Iron deficiency anaemia
  2. ASCORBIC ACID [Concomitant]
     Active Substance: ASCORBIC ACID
  3. CHOLECALCIFEROL [Concomitant]
     Active Substance: CHOLECALCIFEROL
  4. CYANOCOBALAMIN [Concomitant]
     Active Substance: CYANOCOBALAMIN
  5. INDAPAMIDE [Concomitant]
     Active Substance: INDAPAMIDE
  6. CANDESARTAN [Concomitant]
     Active Substance: CANDESARTAN
  7. ACETAMINOPHEN [Concomitant]
     Active Substance: ACETAMINOPHEN
  8. DUTASTERIDE [Concomitant]
     Active Substance: DUTASTERIDE
  9. FERROUS SULFATE [Concomitant]
     Active Substance: FERROUS SULFATE
  10. FLUTICASONE [Concomitant]
     Active Substance: FLUTICASONE
  11. PSYLLIUM HUSK [Concomitant]
     Active Substance: PSYLLIUM HUSK
  12. SIMVASTATIN [Concomitant]
     Active Substance: SIMVASTATIN
  13. FERROUS POLYSACCHARIDE [Concomitant]
  14. TIOTROPIUM BROMIDE [Concomitant]
     Active Substance: TIOTROPIUM BROMIDE
  15. DILTIAZEM [Concomitant]
     Active Substance: DILTIAZEM
  16. MESALAMINE [Concomitant]
     Active Substance: MESALAMINE
  17. RIVAROXABAN [Concomitant]
     Active Substance: RIVAROXABAN
  18. ALBUTEROL [Concomitant]
     Active Substance: ALBUTEROL
  19. TAMSULOSIN [Concomitant]
     Active Substance: TAMSULOSIN

REACTIONS (7)
  - Acute myocardial infarction [Recovered/Resolved]
  - Presyncope [Recovered/Resolved]
  - Unresponsive to stimuli [Recovered/Resolved]
  - Depressed level of consciousness [Recovered/Resolved]
  - Pulse abnormal [Recovered/Resolved]
  - Dyspnoea [Recovered/Resolved]
  - Hypotension [Recovered/Resolved]
